FAERS Safety Report 18120119 (Version 1)
Quarter: 2020Q3

REPORT INFORMATION
  Report Type: Spontaneous
  Country: US (occurrence: US)
  Receive Date: 20200806
  Receipt Date: 20200806
  Transmission Date: 20201103
  Serious: No
  Sender: FDA-Public Use
  Company Number: US-TEVA-2020-US-1809978

PATIENT
  Sex: Female

DRUGS (2)
  1. GLATIRAMER ACETATE. [Suspect]
     Active Substance: GLATIRAMER ACETATE
     Dosage: FORM STRENGTH AND UNIT DOSE UNKNOWN
     Route: 065
  2. AUTOJECT2 (DEVICE) [Suspect]
     Active Substance: DEVICE
     Route: 065

REACTIONS (4)
  - Injection site erythema [Unknown]
  - Injection site bruising [Unknown]
  - Injection site pain [Unknown]
  - Device use issue [Unknown]
